FAERS Safety Report 7561285-6 (Version None)
Quarter: 2011Q2

REPORT INFORMATION
  Report Type: 
  Country: None (occurrence: None)
  Receive Date: 20110621
  Receipt Date: 20100927
  Transmission Date: 20111010
  Serious: No
  Sender: FDA-Public Use
  Company Number: US-ASTRAZENECA-2010SE45341

PATIENT
  Age: 68 Year
  Sex: Female
  Weight: 52.6 kg

DRUGS (4)
  1. RESCUE INHALER [Concomitant]
  2. NORVASC [Concomitant]
  3. PULMICORT FLEXHALER [Suspect]
     Dosage: 180 MCG  ONE PUFF DAILY
     Route: 055
     Dates: start: 20050101
  4. PULMICORT FLEXHALER [Suspect]
     Dosage: 180 MCG ONE PUFF TWICE DAILY
     Route: 055
     Dates: start: 20000101, end: 20050101

REACTIONS (1)
  - VOCAL CORD DISORDER [None]
